FAERS Safety Report 10308962 (Version 1)
Quarter: 2014Q3

REPORT INFORMATION
  Report Type: Report from Study
  Country: CA (occurrence: CA)
  Receive Date: 20140716
  Receipt Date: 20140716
  Transmission Date: 20150326
  Serious: Yes (Disabling)
  Sender: FDA-Public Use
  Company Number: CA-BRISTOL-MYERS SQUIBB COMPANY-21182993

PATIENT
  Age: 75 Year
  Sex: Male

DRUGS (6)
  1. ONGLYZA [Suspect]
     Active Substance: SAXAGLIPTIN HYDROCHLORIDE
     Indication: PROSTATE CANCER
  2. CRESTOR [Concomitant]
     Active Substance: ROSUVASTATIN CALCIUM
  3. VITAMIN D [Concomitant]
     Active Substance: CHOLECALCIFEROL
  4. ZOLADEX [Suspect]
     Active Substance: GOSERELIN ACETATE
     Indication: PROSTATE CANCER
     Dosage: LAST DOSE ON JULY 2, 2014
     Route: 058
     Dates: start: 20120712
  5. CALCIUM [Concomitant]
     Active Substance: CALCIUM
  6. DIAMICRON [Concomitant]
     Active Substance: GLICLAZIDE

REACTIONS (2)
  - Weight increased [Not Recovered/Not Resolved]
  - Dyspnoea [Not Recovered/Not Resolved]

NARRATIVE: CASE EVENT DATE: 2013
